FAERS Safety Report 5424415-8 (Version None)
Quarter: 2007Q3

REPORT INFORMATION
  Report Type: 
  Country: None (occurrence: None)
  Receive Date: 20070822
  Receipt Date: 20070806
  Transmission Date: 20080115
  Serious: Yes (Hospitalization, Other)
  Sender: FDA-Public Use
  Company Number: 230103K07GBR

PATIENT
  Age: 42 Year
  Sex: Female
  Weight: 65.5 kg

DRUGS (4)
  1. REBIF [Suspect]
     Dosage: 22, 3 IN, SUBCUTANEOUS
     Route: 058
     Dates: start: 20030101
  2. AMITRIPTYLINE HYDROCHLORIDE [Concomitant]
  3. ACETAMINOPHEN W/ CODEINE [Concomitant]
  4. ASCORBIC ACID [Concomitant]

REACTIONS (2)
  - ABSCESS [None]
  - ANAEMIA [None]
